FAERS Safety Report 19520387 (Version 4)
Quarter: 2021Q3

REPORT INFORMATION
  Report Type: Report from Study
  Country: US (occurrence: US)
  Receive Date: 20210712
  Receipt Date: 20210811
  Transmission Date: 20211014
  Serious: Yes (Other)
  Sender: FDA-Public Use
  Company Number: US-JNJFOC-20210615839

PATIENT
  Age: 48 Year
  Sex: Female
  Weight: 102.3 kg

DRUGS (5)
  1. LETAIRIS [Concomitant]
     Active Substance: AMBRISENTAN
     Route: 048
  2. SELEXIPAG [Suspect]
     Active Substance: SELEXIPAG
     Route: 048
  3. SELEXIPAG [Suspect]
     Active Substance: SELEXIPAG
     Indication: PULMONARY ARTERIAL HYPERTENSION
     Dosage: UPTRAVI 800 MCG ORALLY 2 TIMES DAILY
     Route: 048
     Dates: start: 20210401
  4. SELEXIPAG [Suspect]
     Active Substance: SELEXIPAG
     Route: 048
  5. SELEXIPAG [Suspect]
     Active Substance: SELEXIPAG
     Dosage: ACCIDENTLY INCREASED FROM 800 TO 1600 MCG (2X800 MCG) WHEN INCREASING TO 1000 MCG DOSE TWICE DAILY?T
     Route: 048
     Dates: start: 20210602

REACTIONS (23)
  - Restless legs syndrome [Unknown]
  - Muscle tightness [Unknown]
  - Facial pain [Unknown]
  - Musculoskeletal stiffness [Recovering/Resolving]
  - Muscle atrophy [Unknown]
  - Musculoskeletal discomfort [Unknown]
  - Oedema [Not Recovered/Not Resolved]
  - Blood pressure increased [Recovering/Resolving]
  - Rhinorrhoea [Unknown]
  - Irritability [Unknown]
  - Myalgia [Not Recovered/Not Resolved]
  - Diarrhoea [Recovering/Resolving]
  - Headache [Unknown]
  - Adverse drug reaction [Unknown]
  - Back pain [Not Recovered/Not Resolved]
  - Muscle twitching [Unknown]
  - Pain in extremity [Unknown]
  - Pain [Unknown]
  - Pain in jaw [Recovering/Resolving]
  - Incorrect dose administered [Recovered/Resolved]
  - Feeling abnormal [Unknown]
  - Muscle spasms [Not Recovered/Not Resolved]
  - Anaemia [Recovered/Resolved]

NARRATIVE: CASE EVENT DATE: 20210414
